FAERS Safety Report 9474535 (Version 1)
Quarter: 2013Q3

REPORT INFORMATION
  Report Type: Spontaneous
  Country: HR (occurrence: HR)
  Receive Date: 20130823
  Receipt Date: 20130823
  Transmission Date: 20140515
  Serious: Yes (Other)
  Sender: FDA-Public Use
  Company Number: HR-BAXTER-2013BAX032579

PATIENT
  Age: 48 Year
  Sex: Male

DRUGS (5)
  1. ENDOXAN INJEKCIJE 1 G [Suspect]
     Indication: EXTRANODAL MARGINAL ZONE B-CELL LYMPHOMA (MALT TYPE)
     Route: 042
     Dates: start: 201110, end: 201204
  2. RITUXIMAB [Suspect]
     Indication: EXTRANODAL MARGINAL ZONE B-CELL LYMPHOMA (MALT TYPE)
     Route: 042
     Dates: start: 201110, end: 201204
  3. DOXORUBICIN [Suspect]
     Indication: EXTRANODAL MARGINAL ZONE B-CELL LYMPHOMA (MALT TYPE)
     Route: 042
     Dates: start: 201110, end: 201204
  4. VINCRISTINE [Suspect]
     Indication: EXTRANODAL MARGINAL ZONE B-CELL LYMPHOMA (MALT TYPE)
     Route: 042
     Dates: start: 201110, end: 201204
  5. METHYLPREDNISOLONE [Suspect]
     Indication: EXTRANODAL MARGINAL ZONE B-CELL LYMPHOMA (MALT TYPE)
     Route: 042
     Dates: start: 201110, end: 201204

REACTIONS (7)
  - Non-Hodgkin^s lymphoma refractory [Unknown]
  - Escherichia test positive [Recovered/Resolved]
  - Klebsiella test positive [Recovered/Resolved]
  - Culture urine positive [Recovered/Resolved]
  - Cystitis radiation [Unknown]
  - Fatigue [Unknown]
  - Vomiting [Unknown]
